FAERS Safety Report 4878713-7 (Version None)
Quarter: 2005Q4

REPORT INFORMATION
  Report Type: 
  Country: None (occurrence: None)
  Receive Date: 20051209
  Receipt Date: 20050916
  Transmission Date: 20060501
  Serious: Yes (Death)
  Sender: FDA-Public Use
  Company Number: USA-2004-0017135

PATIENT
  Age: 46 Year
  Sex: Female
  Weight: 136.1 kg

DRUGS (6)
  1. OXYCONTIN [Suspect]
     Indication: PAIN
     Dosage: 80  MG, TID
  2. HYDROCODONE BITARTRATE (SIMILAR TO IND 59, 175) (HYDROCODONE BITARTRAT [Suspect]
  3. PROPOXYPHENE HCL [Suspect]
  4. TRAZODONE (TRAZODONE) [Suspect]
  5. XANAX [Suspect]
     Dosage: Q8H
  6. SOMA [Concomitant]

REACTIONS (1)
  - MULTIPLE DRUG OVERDOSE [None]
